FAERS Safety Report 8137303-3 (Version None)
Quarter: 2012Q1

REPORT INFORMATION
  Report Type: 
  Country: None (occurrence: None)
  Receive Date: 20120210
  Receipt Date: 20120130
  Transmission Date: 20120608
  Serious: Yes (Other)
  Sender: FDA-Public Use
  Company Number: DSM-2011-01383

PATIENT
  Age: 66 Year
  Sex: Female

DRUGS (3)
  1. AGGRENOX [Suspect]
     Indication: PRODUCT USED FOR UNKNOWN INDICATION
     Dosage: 200/25MG
     Dates: start: 20101002
  2. OLMESARTAN MEDOXOMIL [Suspect]
     Indication: PRODUCT USED FOR UNKNOWN INDICATION
     Dosage: 20 MG, ORAL
     Route: 048
     Dates: start: 20101002
  3. NEBIVOLOL HYDROCHLORIDE [Suspect]
     Indication: PRODUCT USED FOR UNKNOWN INDICATION
     Dosage: 5 MG,ORAL
     Route: 048
     Dates: start: 20101002

REACTIONS (1)
  - STEAL SYNDROME [None]
